FAERS Safety Report 5453812-X (Version None)
Quarter: 2007Q3

REPORT INFORMATION
  Report Type: 
  Country: None (occurrence: None)
  Receive Date: 20070917
  Receipt Date: 20070913
  Transmission Date: 20080115
  Serious: Yes (Death)
  Sender: FDA-Public Use
  Company Number: A0666604A

PATIENT
  Age: 59 Year
  Sex: Female
  Weight: 66.4 kg

DRUGS (2)
  1. ZOFRAN [Suspect]
     Dosage: 8MG SEE DOSAGE TEXT
     Route: 048
     Dates: start: 20060417, end: 20070129
  2. GEMZAR [Concomitant]

REACTIONS (1)
  - PANCREATIC CARCINOMA [None]
